FAERS Safety Report 7235566-X (Version None)
Quarter: 2011Q1

REPORT INFORMATION
  Report Type: 
  Country: None (occurrence: None)
  Receive Date: 20110120
  Receipt Date: 20110112
  Transmission Date: 20110831
  Serious: Yes (Hospitalization, Other)
  Sender: FDA-Public Use
  Company Number: PHHY2009CA47466

PATIENT
  Sex: Male

DRUGS (16)
  1. CRESTOR [Concomitant]
     Dosage: 20 MG, QD
     Route: 048
  2. ASPIRIN [Concomitant]
     Dosage: 81 MG, QD
     Route: 048
  3. EXJADE [Suspect]
     Dosage: 1000 MG, QD
     Route: 048
     Dates: start: 20100303
  4. ALTACE [Concomitant]
     Dosage: 10 MG, QD
     Route: 048
  5. ATENOLOL [Concomitant]
     Dosage: 25 MG, QD
     Route: 048
  6. EXJADE [Suspect]
     Indication: MYELODYSPLASTIC SYNDROME
     Dosage: 1500 MG, UNK
     Route: 048
     Dates: start: 20080101
  7. EXJADE [Suspect]
     Dosage: 1500 MG, UNK
     Route: 048
  8. EXJADE [Suspect]
     Dosage: 1000 MG, QD
     Dates: start: 20100520, end: 20101130
  9. DOMPERIDONE [Concomitant]
     Dosage: 10 MG 4 TIMES A DAY
     Route: 048
  10. ATIVAN [Concomitant]
     Dosage: 2 DF, UNK
     Route: 060
  11. NEXIUM [Concomitant]
     Dosage: 40 MG, QD
     Route: 048
  12. COVERSYL [Concomitant]
     Dosage: 4 MG, QD
     Route: 048
  13. NORVASC [Concomitant]
     Dosage: 5 MG, QD
     Route: 048
  14. PENLAC [Concomitant]
  15. OXAZEPAM [Concomitant]
     Dosage: 15 MG, UNK
     Route: 048
  16. DOVOBET [Concomitant]
     Indication: PSORIASIS
     Dosage: UNK

REACTIONS (9)
  - CHEST PAIN [None]
  - ABDOMINAL DISCOMFORT [None]
  - RASH GENERALISED [None]
  - PRURITUS [None]
  - ARTERIAL DISORDER [None]
  - PHARYNGITIS [None]
  - VOMITING [None]
  - MALAISE [None]
  - HAEMORRHAGE [None]
